FAERS Safety Report 14492122 (Version 2)
Quarter: 2019Q4

REPORT INFORMATION
  Report Type: Spontaneous
  Country: FR (occurrence: FR)
  Receive Date: 20180206
  Receipt Date: 20191220
  Transmission Date: 20200122
  Serious: Yes (Death, Hospitalization, Other)
  Sender: FDA-Public Use
  Company Number: FR-SA-2018SA025751

PATIENT
  Age: 19 Year
  Sex: Female

DRUGS (11)
  1. THERALENE [Suspect]
     Active Substance: TRIMEPRAZINE
     Indication: PSYCHIATRIC DECOMPENSATION
     Dosage: UNK UNK,UNK
     Route: 048
     Dates: start: 20171219, end: 20171227
  2. DEPAKINE [Suspect]
     Active Substance: VALPROATE SODIUM
     Indication: PSYCHIATRIC DECOMPENSATION
     Dosage: UNK UNK,UNK
     Route: 048
     Dates: start: 20171220, end: 20171223
  3. FLUANXOL [FLUPENTIXOL DIHYDROCHLORIDE] [Suspect]
     Active Substance: FLUPENTIXOL DIHYDROCHLORIDE
     Indication: PSYCHIATRIC DECOMPENSATION
     Dosage: UNK UNK,UNK
     Route: 048
     Dates: start: 20171219, end: 20171227
  4. IMODIUM [Concomitant]
     Active Substance: LOPERAMIDE HYDROCHLORIDE
     Dosage: 2 DF,QD
     Route: 048
     Dates: start: 20171220, end: 20171220
  5. STILNOX [Suspect]
     Active Substance: ZOLPIDEM TARTRATE
     Indication: PSYCHIATRIC DECOMPENSATION
     Dosage: UNK UNK,UNK
     Route: 048
     Dates: start: 20171219, end: 20171227
  6. SPREGAL [Concomitant]
     Active Substance: PIPERONYL BUTOXIDE\S-BIOALLETHRIN
     Dosage: 1 DF,UNK
     Route: 003
     Dates: start: 20171219, end: 20171219
  7. ASCABIOL [BENZYL BENZOATE] [Concomitant]
     Dosage: 1 DF,UNK
     Route: 003
     Dates: start: 20171219, end: 20171219
  8. DIAZEPAM. [Suspect]
     Active Substance: DIAZEPAM
     Indication: PSYCHIATRIC DECOMPENSATION
     Dosage: UNK UNK,UNK
     Route: 048
     Dates: start: 20171219, end: 20171227
  9. ARIPIPRAZOLE. [Suspect]
     Active Substance: ARIPIPRAZOLE
     Indication: PSYCHIATRIC DECOMPENSATION
     Dosage: 1 DF,UNK
     Route: 030
     Dates: start: 20171206, end: 20171206
  10. LOXAPAC [LOXAPINE SUCCINATE] [Concomitant]
     Active Substance: LOXAPINE SUCCINATE
     Dosage: 4 DF,UNK
     Route: 030
     Dates: start: 20171219, end: 20171219
  11. OLANZAPINE. [Suspect]
     Active Substance: OLANZAPINE
     Indication: PSYCHIATRIC DECOMPENSATION
     Dosage: UNK UNK,UNK
     Route: 048
     Dates: start: 20171220, end: 20171227

REACTIONS (1)
  - Cardio-respiratory arrest [Fatal]

NARRATIVE: CASE EVENT DATE: 20171227
